FAERS Safety Report 6789771-7 (Version None)
Quarter: 2010Q2

REPORT INFORMATION
  Report Type: 
  Country: None (occurrence: None)
  Receive Date: 20100624
  Receipt Date: 20100614
  Transmission Date: 20101027
  Serious: Yes (Hospitalization)
  Sender: FDA-Public Use
  Company Number: CH-PFIZER INC-2010075104

PATIENT
  Sex: Female

DRUGS (1)
  1. VFEND [Suspect]
     Route: 051

REACTIONS (1)
  - GENERAL PHYSICAL HEALTH DETERIORATION [None]
